FAERS Safety Report 8461400-6 (Version None)
Quarter: 2012Q2

REPORT INFORMATION
  Report Type: 
  Country: None (occurrence: None)
  Receive Date: 20120625
  Receipt Date: 20120611
  Transmission Date: 20120825
  Serious: No
  Sender: FDA-Public Use
  Company Number: US-JNJFOC-20120608195

PATIENT
  Age: 20 Year
  Sex: Female

DRUGS (5)
  1. NEXIUM [Concomitant]
     Route: 048
  2. INVEGA SUSTENNA [Suspect]
     Indication: PRODUCT USED FOR UNKNOWN INDICATION
     Route: 030
     Dates: start: 20120530
  3. INVEGA SUSTENNA [Suspect]
     Dosage: DAY 8 DOSE
     Route: 030
     Dates: start: 20120606
  4. TRAZODONE HCL [Concomitant]
     Route: 048
  5. BIRTH CONTROL PILLS [Concomitant]
     Route: 048

REACTIONS (2)
  - INJECTION SITE PRURITUS [None]
  - INJECTION SITE PAIN [None]
